FAERS Safety Report 25199766 (Version 3)
Quarter: 2025Q2

REPORT INFORMATION
  Report Type: Report from Study
  Country: US (occurrence: US)
  Receive Date: 20250415
  Receipt Date: 20250519
  Transmission Date: 20250717
  Serious: Yes (Other)
  Sender: NOVARTIS
  Company Number: US-002147023-NVSC2025US058816

PATIENT
  Sex: Female
  Weight: 78.02 kg

DRUGS (14)
  1. KESIMPTA [Suspect]
     Active Substance: OFATUMUMAB
     Indication: Multiple sclerosis
     Dosage: 20 MG, TID
     Route: 058
     Dates: start: 20230420, end: 20230504
  2. KESIMPTA [Suspect]
     Active Substance: OFATUMUMAB
     Route: 058
     Dates: start: 20230420, end: 20230504
  3. KESIMPTA [Suspect]
     Active Substance: OFATUMUMAB
     Dosage: 20 MG, QMO
     Route: 058
     Dates: start: 20230519, end: 20250319
  4. CAFFEINE [Concomitant]
     Active Substance: CAFFEINE
     Indication: Product used for unknown indication
     Route: 048
     Dates: start: 20250210, end: 20250404
  5. CAFFEINE [Concomitant]
     Active Substance: CAFFEINE
     Route: 048
     Dates: start: 20250405, end: 20250420
  6. EXCEDRIN [Concomitant]
     Active Substance: ACETAMINOPHEN\ASPIRIN\CAFFEINE
     Indication: Migraine
     Route: 048
     Dates: start: 20250210
  7. GABAPENTIN [Concomitant]
     Active Substance: GABAPENTIN
     Indication: Multiple sclerosis
     Dosage: 800 MG, TID
     Route: 048
     Dates: start: 20230314, end: 20230314
  8. GABAPENTIN [Concomitant]
     Active Substance: GABAPENTIN
     Dosage: 600 MG, TID
     Route: 048
     Dates: start: 20230515, end: 20231213
  9. LYRICA [Concomitant]
     Active Substance: PREGABALIN
     Indication: Multiple sclerosis
     Dosage: 150 MG, BID
     Route: 048
     Dates: start: 20240101, end: 20241130
  10. LYRICA [Concomitant]
     Active Substance: PREGABALIN
     Dosage: 150 MG, QD
     Route: 048
     Dates: start: 20241201, end: 20241215
  11. LYRICA [Concomitant]
     Active Substance: PREGABALIN
     Dosage: 75 MG, QD
     Route: 048
     Dates: start: 20241216, end: 20250131
  12. LYRICA [Concomitant]
     Active Substance: PREGABALIN
     Route: 048
     Dates: start: 20250201, end: 20250320
  13. MOTRIN [Concomitant]
     Active Substance: IBUPROFEN
     Indication: Migraine
     Route: 048
     Dates: start: 20250210
  14. TYLENOL EXTRA STRENGTH [Concomitant]
     Active Substance: ACETAMINOPHEN
     Indication: Pain
     Route: 048
     Dates: start: 20250210

REACTIONS (2)
  - Abortion spontaneous [Unknown]
  - Maternal exposure during pregnancy [Unknown]
